FAERS Safety Report 12815187 (Version 1)
Quarter: 2016Q4

REPORT INFORMATION
  Report Type: Spontaneous
  Country: DE (occurrence: DE)
  Receive Date: 20161005
  Receipt Date: 20161005
  Transmission Date: 20170207
  Serious: Yes (Hospitalization, Other)
  Sender: FDA-Public Use
  Company Number: DE-TEVA-673226GER

PATIENT
  Sex: Male

DRUGS (9)
  1. AMLODIPIN 5 MG [Concomitant]
     Dosage: 5 MILLIGRAM DAILY; 1-0-0
  2. ENALAPRIL COMP 10/25 [Concomitant]
     Dosage: ENALAPRIL 10 MG PLUS HYDROCHLOROTHIAZIDE 25 MG, 1-0-0
  3. ALENDRONS?URE 70 MG [Concomitant]
  4. METFORMIN [Concomitant]
     Active Substance: METFORMIN HYDROCHLORIDE
     Dosage: 2000 MILLIGRAM DAILY; 1-0-1
  5. CALCIUM D3 [Concomitant]
     Active Substance: CALCIUM\CHOLECALCIFEROL
     Dosage: 1-0-0
  6. PANTOPRAZOLE SODIUM. [Concomitant]
     Active Substance: PANTOPRAZOLE SODIUM
     Dosage: 40 MILLIGRAM DAILY; 1-0-0
  7. ASPIRIN. [Concomitant]
     Active Substance: ASPIRIN
     Dosage: 100 MILLIGRAM DAILY; 1-0-0
  8. NITROFURANTOIN-RATIOPHARM 100 MG RETARDKAPSELN [Suspect]
     Active Substance: NITROFURANTOIN
     Indication: PROPHYLAXIS
     Dosage: INTAKE OF 100 MG DAILY FOR 12 WEEKS THAN PAUSING FOR 6 WEEKS
     Route: 048
     Dates: start: 201305, end: 20160526
  9. SIMVASTATIN 10 MG [Concomitant]
     Active Substance: SIMVASTATIN
     Dosage: 10 MILLIGRAM DAILY; 1-0-0

REACTIONS (3)
  - Respiratory failure [Not Recovered/Not Resolved]
  - Pulmonary fibrosis [Not Recovered/Not Resolved]
  - Chronic respiratory failure [Not Recovered/Not Resolved]

NARRATIVE: CASE EVENT DATE: 2016
